FAERS Safety Report 5434844-4 (Version None)
Quarter: 2007Q3

REPORT INFORMATION
  Report Type: 
  Country: None (occurrence: None)
  Receive Date: 20070828
  Receipt Date: 20070828
  Transmission Date: 20080115
  Serious: Yes (Hospitalization)
  Sender: FDA-Public Use
  Company Number: None

PATIENT
  Age: 6 Year
  Sex: Female
  Weight: 19.0511 kg

DRUGS (2)
  1. RISPERDAL [Suspect]
     Indication: ANXIETY
     Dosage: 1 DAILY PO
     Route: 048
     Dates: start: 20070625, end: 20070628
  2. RISPERDAL [Suspect]
     Indication: POST-TRAUMATIC STRESS DISORDER
     Dosage: 1 DAILY PO
     Route: 048
     Dates: start: 20070625, end: 20070628

REACTIONS (2)
  - DEHYDRATION [None]
  - VOMITING [None]
